FAERS Safety Report 15562432 (Version 1)
Quarter: 2018Q4

REPORT INFORMATION
  Report Type: Spontaneous
  Country: ZA (occurrence: ZA)
  Receive Date: 20181029
  Receipt Date: 20181029
  Transmission Date: 20190205
  Serious: Yes (Death, Hospitalization, Other)
  Sender: FDA-Public Use
  Company Number: ZA-JNJFOC-20181030485

PATIENT
  Age: 35 Year
  Sex: Female

DRUGS (14)
  1. AMINOSALICYLIC ACID [Suspect]
     Active Substance: AMINOSALICYLIC ACID
     Indication: TUBERCULOSIS
     Route: 048
     Dates: start: 20180906
  2. TERIZIDONE [Suspect]
     Active Substance: TERIZIDONE
     Indication: TUBERCULOSIS
     Route: 048
     Dates: start: 20180906
  3. CALCIUM GLUCONATE. [Concomitant]
     Active Substance: CALCIUM GLUCONATE
     Route: 065
  4. PREGAMAL [Concomitant]
     Route: 065
  5. ETHIONAMIDE [Suspect]
     Active Substance: ETHIONAMIDE
     Indication: TUBERCULOSIS
     Route: 048
     Dates: start: 20180723
  6. PYRIDOXINE [Concomitant]
     Active Substance: PYRIDOXINE
     Route: 065
  7. TENOFOVIR DISOPROXIL FUMARATE. [Concomitant]
     Active Substance: TENOFOVIR DISOPROXIL FUMARATE
     Route: 065
  8. SIRTURO [Suspect]
     Active Substance: BEDAQUILINE FUMARATE
     Indication: TUBERCULOSIS
     Route: 048
     Dates: start: 20180723
  9. LINEZOLID. [Suspect]
     Active Substance: LINEZOLID
     Indication: TUBERCULOSIS
     Route: 048
     Dates: start: 20180723
  10. CLOFAZIMINE [Suspect]
     Active Substance: CLOFAZIMINE
     Indication: TUBERCULOSIS
     Route: 048
     Dates: start: 20180723
  11. SLOW-MAG [Concomitant]
     Active Substance: MAGNESIUM CHLORIDE
     Route: 065
  12. NEVIRAPINE. [Concomitant]
     Active Substance: NEVIRAPINE
     Route: 065
  13. DELAMANID [Suspect]
     Active Substance: DELAMANID
     Indication: TUBERCULOSIS
     Route: 048
     Dates: start: 20180910
  14. EMTRICITABINE [Concomitant]
     Active Substance: EMTRICITABINE
     Route: 065

REACTIONS (7)
  - Drug-induced liver injury [Unknown]
  - Electrocardiogram QT prolonged [Unknown]
  - Renal impairment [Fatal]
  - Electrolyte imbalance [Unknown]
  - Metabolic acidosis [Fatal]
  - Rash [Unknown]
  - Ischaemia [Unknown]

NARRATIVE: CASE EVENT DATE: 2018
